FAERS Safety Report 4506825-6 (Version None)
Quarter: 2004Q4

REPORT INFORMATION
  Report Type: 
  Country: None (occurrence: None)
  Receive Date: 20041122
  Receipt Date: 20041115
  Transmission Date: 20050328
  Serious: Yes (Other)
  Sender: FDA-Public Use
  Company Number: GB-GLAXOSMITHKLINE-B0356913A

PATIENT
  Age: 53 Year
  Sex: Male
  Weight: 82 kg

DRUGS (2)
  1. AVODART [Suspect]
     Indication: PROSTATISM
     Dosage: 500MCG UNKNOWN
     Route: 048
     Dates: start: 20041101, end: 20041105
  2. TAMSULOSIN [Concomitant]
     Indication: PROSTATISM
     Dosage: 400MCG PER DAY
     Route: 048
     Dates: start: 20041101

REACTIONS (4)
  - DRY MOUTH [None]
  - EJACULATION FAILURE [None]
  - FACE OEDEMA [None]
  - PRURITUS [None]
